FAERS Safety Report 8156299-1 (Version None)
Quarter: 2012Q1

REPORT INFORMATION
  Report Type: 
  Country: None (occurrence: None)
  Receive Date: 20120222
  Receipt Date: 20110328
  Transmission Date: 20120608
  Serious: Yes (Other)
  Sender: FDA-Public Use
  Company Number: US-BRISTOL-MYERS SQUIBB COMPANY-15633092

PATIENT
  Age: 74 Year
  Sex: Female
  Weight: 56 kg

DRUGS (9)
  1. KENALOG [Suspect]
     Indication: EYE OEDEMA
     Dates: start: 20080801
  2. TIMOLOL MALEATE [Concomitant]
  3. AZOPT [Concomitant]
  4. BRIMONIDINE TARTRATE [Concomitant]
  5. NEVANAC [Concomitant]
  6. PREDNISOLONE [Concomitant]
  7. LISINOPRIL [Concomitant]
  8. ZOCOR [Concomitant]
  9. METFORMIN HCL [Concomitant]

REACTIONS (2)
  - BLOOD GLUCOSE INCREASED [None]
  - BLINDNESS [None]
